FAERS Safety Report 15409079 (Version 2)
Quarter: 2018Q4

REPORT INFORMATION
  Report Type: Spontaneous
  Country: GB (occurrence: GB)
  Receive Date: 20180920
  Receipt Date: 20181011
  Transmission Date: 20190204
  Serious: Yes (Death)
  Sender: FDA-Public Use
  Company Number: GB-ABBVIE-18K-167-2492480-00

PATIENT
  Age: 73 Year
  Sex: Female

DRUGS (3)
  1. VENETOCLAX. [Suspect]
     Active Substance: VENETOCLAX
     Indication: B-CELL PROLYMPHOCYTIC LEUKAEMIA
     Route: 048
     Dates: start: 20180614, end: 20180620
  2. VENETOCLAX. [Suspect]
     Active Substance: VENETOCLAX
     Dosage: DOSE ESCALATION
     Route: 048
     Dates: start: 20180628
  3. VENETOCLAX. [Suspect]
     Active Substance: VENETOCLAX
     Dosage: DOSE ESCALATION
     Route: 048
     Dates: start: 20180621, end: 20180627

REACTIONS (4)
  - White blood cell count increased [Not Recovered/Not Resolved]
  - Intentional product use issue [Unknown]
  - B-cell prolymphocytic leukaemia [Fatal]
  - Drug ineffective [Unknown]

NARRATIVE: CASE EVENT DATE: 2018
